FAERS Safety Report 11752271 (Version 1)
Quarter: 2015Q4

REPORT INFORMATION
  Report Type: Spontaneous
  Country: US (occurrence: US)
  Receive Date: 20151118
  Receipt Date: 20151118
  Transmission Date: 20160304
  Serious: No
  Sender: FDA-Public Use
  Company Number: GXBR2015US002158

PATIENT
  Sex: Female

DRUGS (2)
  1. BUPROPION HCL TABLETS [Suspect]
     Active Substance: BUPROPION
     Indication: DEPRESSION
     Dosage: 75 MG, QD
     Route: 065
  2. BUPROPION HCL TABLETS [Suspect]
     Active Substance: BUPROPION
     Dosage: 150 MG, QD
     Route: 065

REACTIONS (1)
  - Insomnia [Unknown]
